FAERS Safety Report 6760112-4 (Version None)
Quarter: 2010Q2

REPORT INFORMATION
  Report Type: 
  Country: None (occurrence: None)
  Receive Date: 20100608
  Receipt Date: 20100527
  Transmission Date: 20101027
  Serious: Yes (Hospitalization)
  Sender: FDA-Public Use
  Company Number: FR-ELI_LILLY_AND_COMPANY-FR201005007381

PATIENT
  Age: 73 Year
  Sex: Female

DRUGS (8)
  1. FORTEO [Suspect]
     Dosage: 20 UG, DAILY (1/D)
     Route: 058
     Dates: start: 20100201, end: 20100414
  2. MIANSERINE BIOGARAN [Concomitant]
     Dosage: UNK, UNKNOWN
     Route: 065
  3. FIXICAL [Concomitant]
     Dosage: UNK, UNKNOWN
     Route: 065
  4. COUMADIN [Concomitant]
     Dosage: UNK, UNKNOWN
     Route: 065
  5. HEMIGOXINE [Concomitant]
     Dosage: UNK, UNKNOWN
     Route: 065
  6. LASIX [Concomitant]
     Dosage: UNK, UNKNOWN
     Route: 065
  7. SERETIDE [Concomitant]
     Dosage: UNK, UNKNOWN
     Route: 065
  8. SINGULAIR [Concomitant]
     Dosage: UNK, UNKNOWN
     Route: 065

REACTIONS (4)
  - CARDIAC MURMUR [None]
  - CHEST PAIN [None]
  - DYSPNOEA EXERTIONAL [None]
  - PALPITATIONS [None]
